FAERS Safety Report 8354758-X (Version None)
Quarter: 2012Q2

REPORT INFORMATION
  Report Type: 
  Country: None (occurrence: None)
  Receive Date: 20120511
  Receipt Date: 20120504
  Transmission Date: 20120825
  Serious: Yes (Hospitalization)
  Sender: FDA-Public Use
  Company Number: FR-GLAXOSMITHKLINE-B0799606A

PATIENT
  Sex: Female

DRUGS (7)
  1. CYTARABINE [Concomitant]
     Indication: ACUTE MYELOID LEUKAEMIA
     Dosage: 50MG TWICE PER DAY
     Route: 058
     Dates: start: 20100826
  2. CIPROFLOXACIN HYDROCHLORIDE [Suspect]
     Indication: PROPHYLAXIS
     Route: 042
     Dates: start: 20120202, end: 20120223
  3. IMIPENEM AND CILASTATIN SODIUM [Suspect]
     Indication: PROPHYLAXIS
     Route: 042
     Dates: start: 20120202, end: 20120223
  4. VANCOMYCIN [Suspect]
     Indication: PROPHYLAXIS
     Route: 042
     Dates: start: 20120202, end: 20120223
  5. MYLOTARG [Concomitant]
     Indication: ACUTE MYELOID LEUKAEMIA
     Dosage: 9MGM2 PER DAY
     Route: 042
     Dates: end: 20120229
  6. ZOVIRAX [Suspect]
     Indication: ANTIVIRAL PROPHYLAXIS
     Route: 042
     Dates: start: 20120220, end: 20120220
  7. DAUNORUBICIN HCL [Concomitant]
     Indication: ACUTE MYELOID LEUKAEMIA
     Route: 042
     Dates: start: 20100826, end: 20120229

REACTIONS (1)
  - ACUTE GENERALISED EXANTHEMATOUS PUSTULOSIS [None]
